FAERS Safety Report 5264103-4 (Version None)
Quarter: 2007Q1

REPORT INFORMATION
  Report Type: 
  Country: None (occurrence: None)
  Receive Date: 20070309
  Receipt Date: 20070228
  Transmission Date: 20070707
  Serious: Yes (Life-Threatening, Hospitalization)
  Sender: FDA-Public Use
  Company Number: FABR-11457

PATIENT
  Age: 39 Year
  Sex: Male
  Weight: 65 kg

DRUGS (8)
  1. FABRAZYME [Suspect]
     Indication: FABRY'S DISEASE
     Dosage: 10 MG Q2WKS IV
     Route: 042
     Dates: start: 20050729, end: 20050908
  2. FABRAZYME [Suspect]
     Indication: FABRY'S DISEASE
     Dosage: 35 MG Q2WKS IV
     Route: 042
     Dates: start: 20050630, end: 20050714
  3. HYDROCORTISONE [Concomitant]
  4. PANADOL [Concomitant]
  5. PHENERGAN HCL [Concomitant]
  6. ZYRTEC [Concomitant]
  7. TRANSHEXAMIC ACID [Concomitant]
  8. DANAZOL [Concomitant]

REACTIONS (3)
  - INFUSION RELATED REACTION [None]
  - OEDEMA [None]
  - THROAT TIGHTNESS [None]
